FAERS Safety Report 21584160 (Version 1)
Quarter: 2022Q4

REPORT INFORMATION
  Report Type: Spontaneous
  Country: US (occurrence: None)
  Receive Date: 20221110
  Receipt Date: 20221110
  Transmission Date: 20230113
  Serious: No
  Sender: FDA-Public Use
  Company Number: None

PATIENT
  Age: 42 Year
  Sex: Male
  Weight: 72.12 kg

DRUGS (1)
  1. COSENTYX [Suspect]
     Active Substance: SECUKINUMAB
     Indication: Spinal osteoarthritis
     Dosage: OTHER QUANTITY : 150MG (1 PEN);?FREQUENCY : MONTHLY;?
     Route: 058
     Dates: start: 202209

REACTIONS (3)
  - Feeding disorder [None]
  - Haematochezia [None]
  - Influenza like illness [None]
